FAERS Safety Report 8434129 (Version 2)
Quarter: 2012Q4

REPORT INFORMATION
  Report Type: Spontaneous
  Country: US (occurrence: None)
  Receive Date: 20120221
  Receipt Date: 20120904
  Transmission Date: 20130627
  Serious: Yes (Other)
  Sender: FDA-Public Use
  Company Number: US-1189932

PATIENT
  Age: 79 Year
  Sex: Male

DRUGS (8)
  1. CALCIUM CHLORIDE\MAGNESIUM CHLORIDE\POTASSIUM CHLORIDE\SODIUM ACETATE\SODIUM CHLORIDE\SODIUM CITRATE [Suspect]
     Indication: INTRAOCULAR LENS IMPLANT
     Route: 031
     Dates: start: 20120110, end: 20120110
  2. BSS PLUS [Suspect]
     Indication: INTRAOCULAR LENS IMPLANT
     Route: 031
     Dates: start: 20120110, end: 20120110
  3. MIOSTAT [Suspect]
     Indication: INTRAOCULAR LENS IMPLANT
     Route: 031
     Dates: start: 20120110, end: 20120110
  4. EPINEPHRINE [Concomitant]
  5. ANCEF [Concomitant]
  6. DEXAMETHASONE [Concomitant]
  7. IOPIDINE [Concomitant]
  8. TIMOPTIC [Concomitant]

REACTIONS (2)
  - Toxic anterior segment syndrome [None]
  - Medication error [None]
